FAERS Safety Report 5894891-5 (Version None)
Quarter: 2008Q3

REPORT INFORMATION
  Report Type: 
  Country: None (occurrence: None)
  Receive Date: 20080924
  Receipt Date: 20080915
  Transmission Date: 20090109
  Serious: Yes (Other)
  Sender: FDA-Public Use
  Company Number: PHHY2008SE21298

PATIENT
  Sex: Female

DRUGS (1)
  1. VOLTAREN T [Suspect]
     Indication: INFLAMMATION
     Dosage: 25MG, 2 TABLETS/DAY
     Route: 048

REACTIONS (5)
  - ARTHRALGIA [None]
  - BEDRIDDEN [None]
  - MUSCLE SPASMS [None]
  - MUSCULAR WEAKNESS [None]
  - MUSCULOSKELETAL STIFFNESS [None]
